FAERS Safety Report 4875168-3 (Version None)
Quarter: 2006Q1

REPORT INFORMATION
  Report Type: 
  Country: None (occurrence: None)
  Receive Date: 20060104
  Receipt Date: 20051219
  Transmission Date: 20060701
  Serious: Yes (Hospitalization)
  Sender: FDA-Public Use
  Company Number: S05-FRA-05749-01

PATIENT
  Age: 38 Year
  Sex: Male

DRUGS (9)
  1. SEROPLEX (ESCITALOPRAM) [Suspect]
  2. TERCIAN (CYAMEMAZINE) [Suspect]
     Dosage: 50 MG QD PO
     Route: 048
  3. VASTAREL ^BIOPHARMA^ (TRIMETAZIDINE HYDROCHLORIDE) [Suspect]
     Dosage: 35 MG QD PO
     Route: 048
  4. STILNOX (ZOLPIDEM) [Suspect]
     Dosage: 10 MG QD PO
     Route: 048
  5. ZYPREXA [Suspect]
  6. NEXIUM [Suspect]
     Dosage: 25 MG QD PO
     Route: 048
  7. XANAX [Concomitant]
  8. VICTAN (ETHYL LOFLAZEPATE) [Concomitant]
  9. CORTICOSTEROIDS [Concomitant]

REACTIONS (8)
  - ARTERIAL THROMBOSIS [None]
  - BLOOD CHOLESTEROL INCREASED [None]
  - BLOOD TRIGLYCERIDES INCREASED [None]
  - CHEST X-RAY ABNORMAL [None]
  - DYSLIPIDAEMIA [None]
  - ILIAC ARTERY THROMBOSIS [None]
  - MUSCULOSKELETAL PAIN [None]
  - PULMONARY EMBOLISM [None]
